FAERS Safety Report 19856711 (Version 1)
Quarter: 2021Q3

REPORT INFORMATION
  Report Type: Spontaneous
  Country: JP (occurrence: JP)
  Receive Date: 20210920
  Receipt Date: 20210920
  Transmission Date: 20211014
  Serious: Yes (Other)
  Sender: FDA-Public Use
  Company Number: JP-TOLMAR, INC.-21JP030298

PATIENT
  Age: 43 Year
  Sex: Female

DRUGS (1)
  1. ELIGARD [Suspect]
     Active Substance: LEUPROLIDE ACETATE
     Indication: UTERINE LEIOMYOMA
     Dosage: UNK

REACTIONS (3)
  - Anaemia [Recovering/Resolving]
  - Adenomyosis [Unknown]
  - Off label use [Unknown]
